FAERS Safety Report 6254784-0 (Version None)
Quarter: 2009Q3

REPORT INFORMATION
  Report Type: 
  Country: None (occurrence: None)
  Receive Date: 20090702
  Receipt Date: 20090622
  Transmission Date: 20100115
  Serious: Yes (Other)
  Sender: FDA-Public Use
  Company Number: US-PFIZER INC-2009202480

PATIENT
  Sex: Female
  Weight: 56.689 kg

DRUGS (4)
  1. GEODON [Suspect]
     Indication: DEPRESSION
     Dosage: 2X/DAY, EVERY DAY
     Route: 048
     Dates: start: 20090301, end: 20090413
  2. BENADRYL [Suspect]
     Indication: HYPERSENSITIVITY
     Dosage: UNK
     Dates: start: 20090101
  3. AMBIEN [Suspect]
     Indication: SLEEP DISORDER
     Dosage: 10 MG, UNK
     Dates: start: 20090325
  4. LITHIUM CARBONATE [Concomitant]
     Indication: DEPRESSION
     Dosage: UNK

REACTIONS (19)
  - AGITATION [None]
  - AKATHISIA [None]
  - ANXIETY [None]
  - ASTHENIA [None]
  - DYSPNOEA [None]
  - FEELING COLD [None]
  - HEART RATE INCREASED [None]
  - HOT FLUSH [None]
  - HYPERHIDROSIS [None]
  - HYPERSENSITIVITY [None]
  - HYPERTENSION [None]
  - PALPITATIONS [None]
  - PERIORBITAL HAEMATOMA [None]
  - SLEEP DISORDER [None]
  - SOMNOLENCE [None]
  - SWELLING FACE [None]
  - TREMOR [None]
  - VOMITING [None]
  - WEIGHT INCREASED [None]
